FAERS Safety Report 10932299 (Version 3)
Quarter: 2015Q3

REPORT INFORMATION
  Report Type: Spontaneous
  Country: US (occurrence: None)
  Receive Date: 20150318
  Receipt Date: 20150710
  Transmission Date: 20151125
  Serious: Yes (Death)
  Sender: FDA-Public Use
  Company Number: EY-BP-US-2015-017

PATIENT
  Age: 2 Year
  Sex: Female

DRUGS (2)
  1. SUBOXONE [Suspect]
     Active Substance: BUPRENORPHINE HYDROCHLORIDE\NALOXONE HYDROCHLORIDE
     Indication: PRODUCT USED FOR UNKNOWN INDICATION
  2. OXYCODONE (OXYCODONE) [Concomitant]
     Active Substance: OXYCODONE

REACTIONS (8)
  - Victim of homicide [None]
  - Loss of consciousness [None]
  - Vomiting [None]
  - Contusion [None]
  - Overdose [None]
  - Toxicity to various agents [None]
  - Laceration [None]
  - Fall [None]

NARRATIVE: CASE EVENT DATE: 201410
